FAERS Safety Report 5573575-7 (Version None)
Quarter: 2007Q4

REPORT INFORMATION
  Report Type: 
  Country: None (occurrence: None)
  Receive Date: 20071220
  Receipt Date: 20071211
  Transmission Date: 20080405
  Serious: Yes (Other)
  Sender: FDA-Public Use
  Company Number: 2007337256

PATIENT
  Age: 57 Year
  Sex: Female
  Weight: 102.0593 kg

DRUGS (4)
  1. LISTERINE WHITENING QUICK DISSOLVING STRIPS (NO ACTIVE INGREDIENT) [Suspect]
     Indication: DENTAL CARE
     Dosage: ONE STRIP ONCE, ORAL
     Route: 048
     Dates: start: 20071204, end: 20071204
  2. RANIDINE (RANITIDINE) [Concomitant]
  3. METHYLPREDNISONE (MEPREDNISONE) [Concomitant]
  4. BENADRYL [Concomitant]

REACTIONS (6)
  - DYSPNOEA [None]
  - EYE OEDEMA [None]
  - HYPERSENSITIVITY [None]
  - LIP SWELLING [None]
  - PHARYNGEAL OEDEMA [None]
  - SWOLLEN TONGUE [None]
